FAERS Safety Report 5816528-3 (Version None)
Quarter: 2008Q3

REPORT INFORMATION
  Report Type: 
  Country: None (occurrence: None)
  Receive Date: 20080717
  Receipt Date: 20080717
  Transmission Date: 20090109
  Serious: Yes (Other)
  Sender: FDA-Public Use
  Company Number: None

PATIENT
  Age: 42 Year
  Sex: Male
  Weight: 65.7716 kg

DRUGS (2)
  1. CIPRO [Suspect]
     Indication: LUNG INFECTION
     Dosage: ONE TWICE A DAY PO
     Route: 048
  2. CIPRO XR [Suspect]
     Indication: NAIL INFECTION
     Dosage: ONE  ONCE A DAY PO, 15 DAYS POSSIBLE
     Route: 048

REACTIONS (24)
  - AGGRESSION [None]
  - ANXIETY [None]
  - ARTHRALGIA [None]
  - BURNING SENSATION [None]
  - DEPRESSION [None]
  - DYSKINESIA [None]
  - FLIGHT OF IDEAS [None]
  - HEADACHE [None]
  - HYPOAESTHESIA [None]
  - INSOMNIA [None]
  - LIGAMENT RUPTURE [None]
  - LIP SWELLING [None]
  - MEMORY IMPAIRMENT [None]
  - MIGRAINE [None]
  - MUSCLE RUPTURE [None]
  - MUSCLE SPASMS [None]
  - MYALGIA [None]
  - NIGHTMARE [None]
  - PANIC ATTACK [None]
  - PSYCHOTIC DISORDER [None]
  - RASH [None]
  - RECTAL HAEMORRHAGE [None]
  - SUICIDE ATTEMPT [None]
  - TENDONITIS [None]
